FAERS Safety Report 25295584 (Version 1)
Quarter: 2025Q2

REPORT INFORMATION
  Report Type: Spontaneous
  Country: US (occurrence: US)
  Receive Date: 20250511
  Receipt Date: 20250511
  Transmission Date: 20250716
  Serious: No
  Sender: SANOFI AVENTIS
  Company Number: US-SA-2025SA129359

PATIENT
  Age: 77 Year
  Sex: Female

DRUGS (3)
  1. DUPIXENT [Suspect]
     Active Substance: DUPILUMAB
     Indication: Asthma
     Route: 058
     Dates: start: 20250328, end: 20250328
  2. DUPIXENT [Suspect]
     Active Substance: DUPILUMAB
     Indication: Cough
  3. DUPIXENT [Suspect]
     Active Substance: DUPILUMAB
     Indication: Bronchial disorder

REACTIONS (3)
  - Pain [Recovering/Resolving]
  - Toothache [Recovered/Resolved]
  - Headache [Recovered/Resolved]

NARRATIVE: CASE EVENT DATE: 20250401
